FAERS Safety Report 18029746 (Version 1)
Quarter: 2020Q3

REPORT INFORMATION
  Report Type: Spontaneous
  Country: US (occurrence: US)
  Receive Date: 20200715
  Receipt Date: 20200715
  Transmission Date: 20201103
  Serious: No
  Sender: FDA-Public Use
  Company Number: None

PATIENT
  Age: 60 Year
  Sex: Female

DRUGS (1)
  1. NEXT HAND SANITIZER [Suspect]
     Active Substance: ALCOHOL
     Indication: COVID-19
     Dosage: ?          QUANTITY:1 1;?

REACTIONS (3)
  - Nausea [None]
  - Product odour abnormal [None]
  - Product quality issue [None]

NARRATIVE: CASE EVENT DATE: 20200601
